FAERS Safety Report 24749449 (Version 1)
Quarter: 2024Q4

REPORT INFORMATION
  Report Type: Spontaneous
  Country: US (occurrence: US)
  Receive Date: 20241218
  Receipt Date: 20241218
  Transmission Date: 20250114
  Serious: Yes (Other)
  Sender: REGENERON
  Company Number: US-REGENERON PHARMACEUTICALS, INC.-2024-173968

PATIENT
  Age: 78 Year
  Sex: Male

DRUGS (1)
  1. LIBTAYO [Suspect]
     Active Substance: CEMIPLIMAB-RWLC
     Indication: Basal cell carcinoma
     Dosage: UNK
     Dates: start: 2023

REACTIONS (3)
  - Myasthenia gravis crisis [Not Recovered/Not Resolved]
  - Myocarditis [Unknown]
  - Myositis [Unknown]
